FAERS Safety Report 9383614 (Version 2)
Quarter: 2013Q3

REPORT INFORMATION
  Report Type: Spontaneous
  Country: US (occurrence: US)
  Receive Date: 20130704
  Receipt Date: 20130715
  Transmission Date: 20140515
  Serious: No
  Sender: FDA-Public Use
  Company Number: US-PFIZER INC-2013196575

PATIENT
  Age: 51 Year
  Sex: Female
  Weight: 39.46 kg

DRUGS (1)
  1. ZOLOFT [Suspect]
     Dosage: 200 MG, 2X/DAY
     Dates: end: 20130627

REACTIONS (5)
  - Heart rate increased [Unknown]
  - Dizziness [Unknown]
  - Abnormal dreams [Unknown]
  - Nausea [Not Recovered/Not Resolved]
  - Insomnia [Recovered/Resolved]
